FAERS Safety Report 15650677 (Version 1)
Quarter: 2018Q4

REPORT INFORMATION
  Report Type: Spontaneous
  Country: FR (occurrence: FR)
  Receive Date: 20181123
  Receipt Date: 20181123
  Transmission Date: 20190205
  Serious: Yes (Hospitalization, Congenital Anomaly)
  Sender: FDA-Public Use
  Company Number: FR-BIOGEN-2018BI00660190

PATIENT
  Age: 0 Day
  Sex: Female

DRUGS (10)
  1. TYSABRI [Suspect]
     Active Substance: NATALIZUMAB
     Indication: RELAPSING-REMITTING MULTIPLE SCLEROSIS
     Route: 064
     Dates: start: 20170120, end: 20170120
  2. SOLU-MEDROL [Suspect]
     Active Substance: METHYLPREDNISOLONE SODIUM SUCCINATE
     Route: 064
     Dates: start: 20170801, end: 20170802
  3. SOLU-MEDROL [Suspect]
     Active Substance: METHYLPREDNISOLONE SODIUM SUCCINATE
     Indication: RELAPSING MULTIPLE SCLEROSIS
     Route: 064
     Dates: start: 20170721, end: 20170723
  4. ADALATE [Suspect]
     Active Substance: NIFEDIPINE
     Indication: THREATENED LABOUR
     Route: 064
     Dates: start: 20170727, end: 20170728
  5. SOLU-MEDROL [Suspect]
     Active Substance: METHYLPREDNISOLONE SODIUM SUCCINATE
     Route: 064
     Dates: start: 20180731, end: 20180731
  6. CELESTENE [BETAMETHASONE] [Suspect]
     Active Substance: BETAMETHASONE
     Indication: THREATENED LABOUR
     Route: 064
     Dates: start: 20170725, end: 20170726
  7. AMOXICILLIN SODIUM [Suspect]
     Active Substance: AMOXICILLIN SODIUM
     Indication: ANTIBIOTIC PROPHYLAXIS
     Route: 065
     Dates: start: 20170727, end: 20180802
  8. TYSABRI [Suspect]
     Active Substance: NATALIZUMAB
     Route: 064
     Dates: start: 20170802, end: 20170802
  9. TYSABRI [Suspect]
     Active Substance: NATALIZUMAB
     Route: 064
     Dates: start: 20170902, end: 20170902
  10. TRACTOCILE [Suspect]
     Active Substance: ATOSIBAN
     Indication: THREATENED LABOUR
     Dosage: UNKNOWN
     Route: 064
     Dates: start: 20170725, end: 20170726

REACTIONS (2)
  - Inguinal hernia [Recovered/Resolved]
  - Low birth weight baby [Not Recovered/Not Resolved]

NARRATIVE: CASE EVENT DATE: 20170930
